FAERS Safety Report 7113310-4 (Version None)
Quarter: 2010Q4

REPORT INFORMATION
  Report Type: 
  Country: None (occurrence: None)
  Receive Date: 20101119
  Receipt Date: 20100820
  Transmission Date: 20110411
  Serious: No
  Sender: FDA-Public Use
  Company Number: A0877004A

PATIENT
  Age: 63 Year
  Sex: Female

DRUGS (12)
  1. WELLBUTRIN SR [Suspect]
     Indication: DEPRESSION
     Route: 048
     Dates: start: 20060101
  2. CLONOPIN [Concomitant]
  3. TRAZODONE HCL [Concomitant]
  4. LEXAPRO [Concomitant]
  5. NEXIUM [Concomitant]
  6. HYDROXYZINE [Concomitant]
  7. CALCIUM [Concomitant]
  8. CINNAMON [Concomitant]
  9. CRANBERRY [Concomitant]
  10. FISH OIL [Concomitant]
  11. FLAX SEED [Concomitant]
  12. VITAMIN B [Concomitant]

REACTIONS (5)
  - ANXIETY [None]
  - FEELING ABNORMAL [None]
  - HUNGER [None]
  - MENTAL IMPAIRMENT [None]
  - WRONG TECHNIQUE IN DRUG USAGE PROCESS [None]
